FAERS Safety Report 4526853-4 (Version None)
Quarter: 2004Q4

REPORT INFORMATION
  Report Type: 
  Country: None (occurrence: None)
  Receive Date: 20041213
  Receipt Date: 20041126
  Transmission Date: 20050328
  Serious: Yes (Death)
  Sender: FDA-Public Use
  Company Number: 04KOR0260

PATIENT
  Sex: Female

DRUGS (5)
  1. AGGRASTAT [Suspect]
     Indication: ACUTE CORONARY SYNDROME
     Dosage: SEE IMAGE
     Dates: start: 20040506, end: 20040507
  2. ASPIRIN [Concomitant]
  3. ASPIRIN [Concomitant]
  4. CLOPIDOGREL BISULFATE (CLOPIDOGREL SULFATE) [Concomitant]
  5. HEPARIN [Concomitant]

REACTIONS (1)
  - CARDIAC DEATH [None]
